FAERS Safety Report 6269263-4 (Version None)
Quarter: 2009Q3

REPORT INFORMATION
  Report Type: 
  Country: None (occurrence: None)
  Receive Date: 20090715
  Receipt Date: 20090707
  Transmission Date: 20100115
  Serious: Yes (Hospitalization, Disabling)
  Sender: FDA-Public Use
  Company Number: US-CELGENEUS-163-21880-09050209

PATIENT
  Sex: Male

DRUGS (3)
  1. REVLIMID [Suspect]
     Route: 048
     Dates: start: 20080917
  2. VIDAZA [Suspect]
     Route: 065
  3. VITAMIN D [Concomitant]
     Indication: DRUG USE FOR UNKNOWN INDICATION
     Route: 065

REACTIONS (7)
  - BACK PAIN [None]
  - DYSPNOEA [None]
  - HYPERCALCAEMIA [None]
  - HYPERVITAMINOSIS [None]
  - PLATELET COUNT DECREASED [None]
  - PRURITUS [None]
  - RENAL FAILURE ACUTE [None]
